APPROVED DRUG PRODUCT: ESTRADIOL
Active Ingredient: ESTRADIOL
Strength: 2MG
Dosage Form/Route: TABLET;ORAL
Application: A040326 | Product #003
Applicant: PHARMOBEDIENT CONSULTING LLC
Approved: Apr 21, 1999 | RLD: No | RS: No | Type: DISCN